FAERS Safety Report 9837894 (Version 1)
Quarter: 2013Q4

REPORT INFORMATION
  Report Type: Spontaneous
  Country: US (occurrence: None)
  Receive Date: 20131205
  Receipt Date: 20131205
  Transmission Date: 20140711
  Serious: No
  Sender: FDA-Public Use
  Company Number: 163-POMAL-13105830

PATIENT
  Age: 53 Year
  Sex: Female
  Weight: 57.2 kg

DRUGS (9)
  1. POMALYST (POMALIDOMIDE) (4 MILLIGRAM, CAPSULES) [Suspect]
     Indication: PLASMA CELL MYELOMA
     Dosage: 4 MG, 1 IN 1 D, PO
     Route: 048
     Dates: start: 20130605
  2. VALTREX [Concomitant]
  3. FISH OIL [Concomitant]
  4. ZOMETA (ZOLEDRONIC ACID) (UNKNOWN) [Concomitant]
  5. CALCIUM [Concomitant]
  6. DEXAMETHASONE [Concomitant]
  7. ASPIRIN BUFFERED [Concomitant]
  8. FOLIC ACID [Concomitant]
  9. VITAMIN D [Concomitant]

REACTIONS (2)
  - Laboratory test abnormal [None]
  - Drug dose omission [None]
